FAERS Safety Report 25904669 (Version 3)
Quarter: 2025Q4

REPORT INFORMATION
  Report Type: Report from Study
  Country: AU (occurrence: AU)
  Receive Date: 20251010
  Receipt Date: 20251105
  Transmission Date: 20260118
  Serious: Yes (Hospitalization, Other)
  Sender: TAKEDA
  Company Number: AU-TAKEDA-2025TUS087055

PATIENT
  Age: 30 Year
  Sex: Female

DRUGS (4)
  1. VEDOLIZUMAB [Suspect]
     Active Substance: VEDOLIZUMAB
     Indication: Crohn^s disease
     Dosage: 300 MILLIGRAM
     Dates: start: 20250911, end: 20251029
  2. AMITRIPTYLINE [Concomitant]
     Active Substance: AMITRIPTYLINE
     Dosage: UNK
  3. Paxam [Concomitant]
     Dosage: UNK
  4. CLOZAPINE [Concomitant]
     Active Substance: CLOZAPINE
     Dosage: UNK

REACTIONS (3)
  - Suicide attempt [Not Recovered/Not Resolved]
  - Intentional overdose [Unknown]
  - Product dose omission issue [Not Recovered/Not Resolved]

NARRATIVE: CASE EVENT DATE: 20250929
